FAERS Safety Report 8335318-3 (Version None)
Quarter: 2012Q2

REPORT INFORMATION
  Report Type: 
  Country: None (occurrence: None)
  Receive Date: 20120503
  Receipt Date: 20120425
  Transmission Date: 20120825
  Serious: Yes (Death, Hospitalization)
  Sender: FDA-Public Use
  Company Number: PHHO2010US11433

PATIENT
  Sex: Male

DRUGS (35)
  1. NEORAL [Suspect]
     Dosage: 300 MG, QD
     Route: 048
     Dates: start: 20110704
  2. PREDNISONE TAB [Suspect]
     Dosage: UNK
     Route: 048
     Dates: start: 20100323
  3. MYCOPHENOLATE MOFETIL (CELLCEPT) [Suspect]
     Indication: RENAL TRANSPLANT
     Dosage: UNK
     Route: 048
     Dates: start: 20100326
  4. NIZORAL [Concomitant]
     Dosage: UNK
     Dates: start: 20070223
  5. INSULIN [Concomitant]
     Dosage: UNK
     Dates: start: 20110803
  6. AMLODIPINE [Concomitant]
  7. ADVAIR DISKUS 100/50 [Concomitant]
     Dosage: UNK
     Dates: start: 20110806
  8. ASPIRIN [Concomitant]
     Dosage: UNK
     Dates: start: 20110806
  9. ESOMEPRAZOLE [Concomitant]
  10. PHENERGAN [Concomitant]
  11. CARVEDILOL [Concomitant]
     Dosage: UNK
     Dates: start: 20110806
  12. METOPROLOL TARTRATE [Concomitant]
     Dosage: UNK
     Dates: start: 20111022
  13. VITAMIN D [Concomitant]
     Dosage: UNK
     Dates: start: 20111019
  14. PRAMOSONE [Concomitant]
     Dosage: UNK
     Dates: start: 20090811
  15. DIFLUCAN [Concomitant]
  16. FUROSEMIDE [Concomitant]
     Dosage: UNK
     Dates: start: 20111019
  17. PREVACID [Concomitant]
     Dosage: UNK
     Dates: start: 20110804
  18. COUMADIN [Concomitant]
     Dosage: UNK
     Dates: start: 20111012
  19. FISH OIL [Concomitant]
     Dosage: UNK
     Dates: start: 20111019
  20. ALPRAZOLAM [Concomitant]
     Dosage: UNK
     Dates: start: 20120203
  21. MYCOPHENOLATE MOFETIL (CELLCEPT) [Suspect]
     Dosage: UNK
     Route: 048
     Dates: start: 20110804
  22. TRICOR [Concomitant]
  23. SPIRIVA [Concomitant]
     Dosage: UNK
     Dates: start: 20110804
  24. THYROID TAB [Concomitant]
     Dosage: UNK
     Dates: start: 20110806
  25. PREDNISONE TAB [Suspect]
     Dosage: UNK
     Route: 048
     Dates: start: 20111005
  26. NEORAL [Suspect]
     Indication: RENAL TRANSPLANT
     Dosage: 300 MG, QD
     Route: 048
     Dates: start: 20100326
  27. OXYGEN [Concomitant]
     Dosage: UNK
     Dates: start: 20020101
  28. ENALAPRIL MALEATE [Concomitant]
  29. MELATONIN [Concomitant]
  30. ZOFRAN [Concomitant]
     Dosage: UNK
     Dates: start: 20110806
  31. FERROUS SULFATE TAB [Concomitant]
     Dosage: UNK
     Dates: start: 20111019
  32. HYDROXYZINE [Concomitant]
     Dosage: UNK
     Dates: start: 20110404
  33. AMMONIUM LACTATE [Concomitant]
     Dosage: UNK
     Dates: start: 20070223
  34. DOCUSATE [Concomitant]
     Dosage: UNK
     Dates: start: 20110806
  35. LIPITOR [Concomitant]

REACTIONS (4)
  - ACUTE RESPIRATORY DISTRESS SYNDROME [None]
  - CELLULITIS [None]
  - ACUTE RESPIRATORY FAILURE [None]
  - BLOOD CREATININE INCREASED [None]
